FAERS Safety Report 5106084-X (Version None)
Quarter: 2006Q3

REPORT INFORMATION
  Report Type: 
  Country: None (occurrence: None)
  Receive Date: 20060912
  Receipt Date: 20060831
  Transmission Date: 20061208
  Serious: Yes (Other)
  Sender: FDA-Public Use
  Company Number: 2006_000022

PATIENT
  Sex: Female

DRUGS (1)
  1. DEPOCYT [Suspect]
     Indication: CENTRAL NERVOUS SYSTEM LYMPHOMA
     Dosage: 50 MG;

REACTIONS (4)
  - ABDOMINAL PAIN [None]
  - CHEMICAL INJURY [None]
  - PERITONITIS [None]
  - SOMNOLENCE [None]
